FAERS Safety Report 6004191-0 (Version None)
Quarter: 2008Q4

REPORT INFORMATION
  Report Type: 
  Country: None (occurrence: None)
  Receive Date: 20081215
  Receipt Date: 20081215
  Transmission Date: 20090506
  Serious: Yes (Other)
  Sender: FDA-Public Use
  Company Number: None

PATIENT
  Age: 55 Year
  Sex: Female
  Weight: 68.0396 kg

DRUGS (1)
  1. ALENDRONATE SODIUM [Suspect]
     Indication: OSTEOPOROSIS
     Dosage: 70 MG ONCE PER WEEK PO
     Route: 048
     Dates: start: 20080818, end: 20081021

REACTIONS (3)
  - ARTHRALGIA [None]
  - CONDITION AGGRAVATED [None]
  - HOT FLUSH [None]
